FAERS Safety Report 15879148 (Version 1)
Quarter: 2019Q1

REPORT INFORMATION
  Report Type: Spontaneous
  Country: US (occurrence: US)
  Receive Date: 20190128
  Receipt Date: 20190128
  Transmission Date: 20190417
  Serious: Yes (Other)
  Sender: FDA-Public Use
  Company Number: US-GLAXOSMITHKLINE-US2019009855

PATIENT
  Age: 84 Year
  Sex: Female

DRUGS (1)
  1. SENSODYNE ORIGINAL FLAVOR [Suspect]
     Active Substance: POTASSIUM NITRATE\SODIUM FLUORIDE
     Indication: DENTAL CARE
     Dosage: UNK UNK, TID

REACTIONS (1)
  - Drug dependence [Unknown]
